FAERS Safety Report 13409998 (Version 1)
Quarter: 2017Q2

REPORT INFORMATION
  Report Type: Report from Study
  Country: BR (occurrence: BR)
  Receive Date: 20170406
  Receipt Date: 20170406
  Transmission Date: 20170830
  Serious: Yes (Death)
  Sender: FDA-Public Use
  Company Number: BR-ROCHE-1915758

PATIENT
  Age: 60 Year
  Sex: Female
  Weight: 71 kg

DRUGS (5)
  1. OXALIPLATIN. [Concomitant]
     Active Substance: OXALIPLATIN
     Indication: COLORECTAL CANCER
     Route: 065
     Dates: end: 20160625
  2. AVASTIN [Suspect]
     Active Substance: BEVACIZUMAB
     Indication: COLORECTAL CANCER
     Dosage: ON 25/NOV/2016, THE PATIENT RECEIVED LAST DOSE OF BEVACIZUMB.
     Route: 042
     Dates: start: 20151120
  3. FLUOROURACIL. [Concomitant]
     Active Substance: FLUOROURACIL
     Indication: COLORECTAL CANCER
     Dosage: ON 25/NOV/2016, THE PATIENT RECEIVED LAST DOSE OF 5-FLUOROURACIL.
     Route: 065
     Dates: end: 20160625
  4. IRINOTECAN [Concomitant]
     Active Substance: IRINOTECAN
     Indication: COLORECTAL CANCER
     Dosage: ON 25/NOV/2016, THE PATIENT RECEIVED LAST DOSE OF IRINOTECAN.
     Route: 065
  5. LEUCOVORIN. [Concomitant]
     Active Substance: LEUCOVORIN
     Indication: COLORECTAL CANCER
     Dosage: ON 25/NOV/2016, THE PATIENT RECEIVED LAST DOSE OF LEUCOVORIN.
     Route: 065
     Dates: end: 20160625

REACTIONS (1)
  - Death [Fatal]
